FAERS Safety Report 15140327 (Version 1)
Quarter: 2018Q3

REPORT INFORMATION
  Report Type: Spontaneous
  Country: IN (occurrence: IN)
  Receive Date: 20180713
  Receipt Date: 20180713
  Transmission Date: 20181010
  Serious: Yes (Other)
  Sender: FDA-Public Use
  Company Number: PHHY2018IN035739

PATIENT
  Age: 27 Year
  Sex: Female

DRUGS (1)
  1. METHOTREXATE. [Suspect]
     Active Substance: METHOTREXATE
     Indication: ACUTE LYMPHOCYTIC LEUKAEMIA
     Route: 037

REACTIONS (9)
  - Neurological symptom [Unknown]
  - Exophthalmos [Unknown]
  - Blindness [Unknown]
  - Facial paralysis [Unknown]
  - Acute lymphocytic leukaemia recurrent [Unknown]
  - Toxic leukoencephalopathy [Unknown]
  - Hypoaesthesia [Unknown]
  - Drooling [Unknown]
  - Vision blurred [Unknown]
